FAERS Safety Report 5360737-7 (Version None)
Quarter: 2007Q2

REPORT INFORMATION
  Report Type: 
  Country: None (occurrence: None)
  Receive Date: 20070618
  Receipt Date: 20070614
  Transmission Date: 20071010
  Serious: Yes (Hospitalization)
  Sender: FDA-Public Use
  Company Number: HQWYE504118NOV04

PATIENT
  Sex: Male
  Weight: 79.3 kg

DRUGS (14)
  1. SIROLIMUS [Suspect]
     Indication: PROPHYLAXIS AGAINST TRANSPLANT REJECTION
     Route: 048
     Dates: start: 20041003
  2. MEDROL [Suspect]
     Indication: PROPHYLAXIS AGAINST TRANSPLANT REJECTION
     Dosage: UNSPECIFIED
     Route: 065
  3. MAALOX FAST BLOCKER [Concomitant]
     Dosage: UNSPECIFIED
     Route: 065
  4. ALTERNAGEL [Concomitant]
     Dosage: UNSPECIFIED
     Route: 065
  5. ASCORBIC ACID/ERGOCALCIFEROL/FOLIC ACID/NICOTINAMIDE/PANTHENOL/RETINOL [Concomitant]
     Dosage: UNSPECIFIED
     Route: 065
  6. ADALAT [Concomitant]
     Route: 065
  7. PROTONIX [Concomitant]
     Dosage: UNSPECIFIED
     Route: 065
  8. VALCYTE [Concomitant]
     Dosage: UNSPECIFIED
     Route: 065
  9. BACTRIM [Concomitant]
     Dosage: UNSPECIFIED
     Route: 065
  10. ASPIRIN [Concomitant]
     Dosage: UNSPECIFIED
     Route: 065
  11. POTASSIUM PHOSPHATES [Concomitant]
     Route: 065
  12. LOPRESSOR [Concomitant]
     Route: 065
  13. PROGRAF [Suspect]
     Indication: PROPHYLAXIS AGAINST TRANSPLANT REJECTION
     Dosage: UNSPECIFIED
     Route: 065
  14. NYSTATIN [Concomitant]
     Dosage: UNSPECIFIED
     Route: 065

REACTIONS (4)
  - EPIDIDYMITIS [None]
  - HYDROCELE [None]
  - HYDRONEPHROSIS [None]
  - KIDNEY TRANSPLANT REJECTION [None]
